FAERS Safety Report 6783981-0 (Version None)
Quarter: 2010Q2

REPORT INFORMATION
  Report Type: 
  Country: None (occurrence: None)
  Receive Date: 20100622
  Receipt Date: 20100303
  Transmission Date: 20101027
  Serious: No
  Sender: FDA-Public Use
  Company Number: US-BRISTOL-MYERS SQUIBB COMPANY-15002504

PATIENT
  Sex: Male

DRUGS (1)
  1. SINEMET [Suspect]
     Dosage: 1DF - 25MG/100MG

REACTIONS (1)
  - ABDOMINAL PAIN UPPER [None]
